FAERS Safety Report 10663955 (Version 2)
Quarter: 2014Q4

REPORT INFORMATION
  Report Type: Spontaneous
  Country: US (occurrence: US)
  Receive Date: 20141219
  Receipt Date: 20141226
  Transmission Date: 20150529
  Serious: Yes (Other)
  Sender: FDA-Public Use
  Company Number: CHPA2014US016526

PATIENT
  Age: 36 Year
  Sex: Male

DRUGS (5)
  1. VOLTAREN [Suspect]
     Active Substance: DICLOFENAC SODIUM
     Dosage: FINGER TIP SIZE, 3 TO 4 TIMES A DAY
     Route: 061
     Dates: start: 2014
  2. TRIAMTERENE. [Suspect]
     Active Substance: TRIAMTERENE
     Indication: HYPERTENSION
     Dosage: UNK
     Route: 065
     Dates: start: 2011
  3. VOLTAREN [Suspect]
     Active Substance: DICLOFENAC SODIUM
     Dosage: PEA SIZE AMOUNT, PRN
     Route: 061
     Dates: start: 2014
  4. ANALGESICS [Concomitant]
     Active Substance: UNSPECIFIED INGREDIENT
     Indication: PAIN
     Dosage: UNK
     Route: 065
     Dates: start: 2012
  5. VOLTAREN [Suspect]
     Active Substance: DICLOFENAC SODIUM
     Indication: ARTHRALGIA
     Dosage: FINGER TIP SIZE, 3 TO 4 TIMES A DAY
     Route: 061
     Dates: start: 2014

REACTIONS (9)
  - Back pain [Recovered/Resolved]
  - Product use issue [Unknown]
  - Spinal meningioma benign [Recovered/Resolved]
  - Nerve injury [Not Recovered/Not Resolved]
  - Intervertebral disc disorder [Recovered/Resolved]
  - Drug administered at inappropriate site [Unknown]
  - Syncope [Recovered/Resolved]
  - Spinal cord disorder [Recovered/Resolved]
  - Wrong technique in drug usage process [Unknown]

NARRATIVE: CASE EVENT DATE: 2014
